FAERS Safety Report 9026087 (Version 2)
Quarter: 2013Q4

REPORT INFORMATION
  Report Type: Spontaneous
  Country: CA (occurrence: CA)
  Receive Date: 20130122
  Receipt Date: 20131008
  Transmission Date: 20140711
  Serious: Yes (Other)
  Sender: FDA-Public Use
  Company Number: CA-ROCHE-1181054

PATIENT
  Sex: Female

DRUGS (3)
  1. TAMIFLU [Suspect]
     Indication: ANTIVIRAL PROPHYLAXIS
     Route: 048
     Dates: start: 20130104
  2. CARBAMAZEPINE [Concomitant]
     Indication: CONVULSION
     Route: 065
  3. DIVALPROEX [Concomitant]
     Indication: CONVULSION
     Route: 065

REACTIONS (1)
  - Convulsion [Recovered/Resolved]
